FAERS Safety Report 6942067-2 (Version None)
Quarter: 2010Q3

REPORT INFORMATION
  Report Type: 
  Country: None (occurrence: None)
  Receive Date: 20100823
  Receipt Date: 20100813
  Transmission Date: 20110219
  Serious: Yes (Hospitalization)
  Sender: FDA-Public Use
  Company Number: 017175

PATIENT
  Sex: Female

DRUGS (7)
  1. KEPPRA [Suspect]
     Indication: EPILEPSY
     Dosage: (250 MG BID ORAL), (500 MG BID ORAL), (250 MG QD ORAL)
     Route: 048
     Dates: start: 20091015, end: 20100208
  2. KEPPRA [Suspect]
     Indication: EPILEPSY
     Dosage: (250 MG BID ORAL), (500 MG BID ORAL), (250 MG QD ORAL)
     Route: 048
     Dates: start: 20100209, end: 20100212
  3. KEPPRA [Suspect]
     Indication: EPILEPSY
     Dosage: (250 MG BID ORAL), (500 MG BID ORAL), (250 MG QD ORAL)
     Route: 048
     Dates: start: 20100213, end: 20100218
  4. KEPPRA [Suspect]
     Indication: EPILEPSY
     Dosage: (250 MG BID ORAL), (500 MG BID ORAL), (250 MG QD ORAL)
     Route: 048
     Dates: start: 20100219, end: 20100222
  5. VALIUM [Concomitant]
  6. LEVOTHYROXINE SODIUM [Concomitant]
  7. EQUANIL [Concomitant]

REACTIONS (7)
  - BRADYPHRENIA [None]
  - FALL [None]
  - GRAND MAL CONVULSION [None]
  - HYPONATRAEMIA [None]
  - MALAISE [None]
  - PETIT MAL EPILEPSY [None]
  - SOMNOLENCE [None]
